FAERS Safety Report 6225718-X (Version None)
Quarter: 2009Q2

REPORT INFORMATION
  Report Type: 
  Country: None (occurrence: None)
  Receive Date: 20090612
  Receipt Date: 20090506
  Transmission Date: 20091009
  Serious: No
  Sender: FDA-Public Use
  Company Number: US-ABBOTT-09P-163-0570982-00

PATIENT
  Sex: Male
  Weight: 93.07 kg

DRUGS (4)
  1. HUMIRA [Suspect]
     Indication: PSORIATIC ARTHROPATHY
     Route: 058
     Dates: start: 20081101, end: 20090401
  2. HUMIRA [Suspect]
     Dates: start: 20090401
  3. PROTOPIC [Concomitant]
     Indication: PSORIASIS
     Route: 061
  4. OLUX [Concomitant]
     Indication: PSORIASIS
     Route: 061

REACTIONS (5)
  - DRUG DOSE OMISSION [None]
  - JOINT STIFFNESS [None]
  - NASAL CONGESTION [None]
  - PSORIATIC ARTHROPATHY [None]
  - RHINORRHOEA [None]
